FAERS Safety Report 5248532-0 (Version None)
Quarter: 2007Q1

REPORT INFORMATION
  Report Type: 
  Country: None (occurrence: None)
  Receive Date: 20070227
  Receipt Date: 20070219
  Transmission Date: 20070707
  Serious: Yes (Death)
  Sender: FDA-Public Use
  Company Number: ES-PFIZER INC-2007013179

PATIENT
  Sex: Female

DRUGS (1)
  1. FRAGMIN [Suspect]
     Dosage: TEXT:2500 UI 0.2 ML
     Route: 065

REACTIONS (1)
  - DEATH [None]
